FAERS Safety Report 9084212 (Version 1)
Quarter: 2013Q1

REPORT INFORMATION
  Report Type: Report from Study
  Country: US (occurrence: US)
  Receive Date: 20130131
  Receipt Date: 20130131
  Transmission Date: 20140127
  Serious: No
  Sender: FDA-Public Use
  Company Number: US-ABBOTT-12P-163-0993975-00

PATIENT
  Age: 56 Year
  Sex: Female

DRUGS (7)
  1. HUMIRA [Suspect]
     Indication: CROHN^S DISEASE
     Dates: start: 20120517
  2. XANAX [Concomitant]
     Indication: CROHN^S DISEASE
  3. NEXIUM [Concomitant]
     Indication: CROHN^S DISEASE
  4. DOXEPIN [Concomitant]
     Indication: CROHN^S DISEASE
  5. 6-MP [Concomitant]
     Indication: CROHN^S DISEASE
  6. LORTAB [Concomitant]
     Indication: PAIN
  7. PATCHES [Concomitant]
     Indication: HOT FLUSH
     Dosage: EVERY 3 DAYS CHANGE THEM

REACTIONS (4)
  - Oropharyngeal pain [Not Recovered/Not Resolved]
  - Cough [Not Recovered/Not Resolved]
  - Chest pain [Not Recovered/Not Resolved]
  - Cough [Not Recovered/Not Resolved]
